FAERS Safety Report 25500181 (Version 1)
Quarter: 2025Q2

REPORT INFORMATION
  Report Type: Spontaneous
  Country: US (occurrence: None)
  Receive Date: 20250628
  Receipt Date: 20250628
  Transmission Date: 20250717
  Serious: Yes (Hospitalization)
  Sender: FDA-CTU
  Company Number: None

PATIENT
  Age: 42 Year
  Sex: Male
  Weight: 63 kg

DRUGS (1)
  1. BUSPIRONE [Suspect]
     Active Substance: BUSPIRONE HYDROCHLORIDE
     Indication: Generalised anxiety disorder
     Dates: start: 20250125, end: 20250208

REACTIONS (8)
  - Generalised anxiety disorder [None]
  - Headache [None]
  - Neuralgia [None]
  - Insomnia [None]
  - Dyspepsia [None]
  - Brain fog [None]
  - Dissociation [None]
  - Constipation [None]

NARRATIVE: CASE EVENT DATE: 20250208
